FAERS Safety Report 9768475 (Version 1)
Quarter: 2013Q4

REPORT INFORMATION
  Report Type: Spontaneous
  Country: NO (occurrence: NO)
  Receive Date: 20131217
  Receipt Date: 20131217
  Transmission Date: 20140711
  Serious: Yes (Life-Threatening, Hospitalization)
  Sender: FDA-Public Use
  Company Number: NO-ASTRAZENECA-2013SE90971

PATIENT
  Age: 33019 Day
  Sex: Female

DRUGS (4)
  1. BRILIQUE [Suspect]
     Indication: ACUTE MYOCARDIAL INFARCTION
     Route: 048
     Dates: start: 20131027, end: 20131104
  2. SELO-ZOK [Suspect]
     Indication: HYPERTENSION
     Route: 048
     Dates: start: 2009
  3. SELO-ZOK [Suspect]
     Indication: HYPERTENSION
     Route: 048
  4. ALBYL-E [Suspect]
     Route: 065

REACTIONS (3)
  - Syncope [Recovered/Resolved with Sequelae]
  - Sinus arrest [Recovered/Resolved with Sequelae]
  - Arrhythmia supraventricular [Unknown]
